FAERS Safety Report 7565417-5 (Version None)
Quarter: 2011Q2

REPORT INFORMATION
  Report Type: 
  Country: None (occurrence: None)
  Receive Date: 20110623
  Receipt Date: 20110614
  Transmission Date: 20111010
  Serious: No
  Sender: FDA-Public Use
  Company Number: US-BIOGENIDEC-2011BI022009

PATIENT
  Sex: Female

DRUGS (2)
  1. TYSABRI [Suspect]
     Indication: MULTIPLE SCLEROSIS
     Route: 042
     Dates: start: 20071101
  2. ANTIDEPRESSANT [Concomitant]

REACTIONS (7)
  - ROAD TRAFFIC ACCIDENT [None]
  - LOSS OF CONTROL OF LEGS [None]
  - MUSCULOSKELETAL STIFFNESS [None]
  - WHIPLASH INJURY [None]
  - ASTHENIA [None]
  - MUSCULAR WEAKNESS [None]
  - EMOTIONAL DISORDER [None]
